FAERS Safety Report 7260209 (Version 2)
Quarter: 2014Q1

REPORT INFORMATION
  Report Type: Spontaneous
  Country: US (occurrence: None)
  Receive Date: 20100119
  Receipt Date: 20140131
  Transmission Date: 20141002
  Serious: No
  Sender: FDA-Public Use
  Company Number: 2010S1000041

PATIENT
  Sex: Male

DRUGS (8)
  1. SODIUM PHOSPHATE, DIBASIC [Suspect]
     Indication: PRODUCT USED FOR UNKNOWN INDICATION
     Dosage: PO
     Route: 048
     Dates: start: 20031014
  2. RYTHMOL (PROPAFENONE) [Concomitant]
  3. TIAZAC (DILTIAZEM HYDROCHLORIDE) [Concomitant]
  4. PROBENECID (PROBENECID) [Concomitant]
  5. ASPIRIN ACETYLSALICYLIC ACID) [Concomitant]
  6. MULTIVITAMIN (MULTIVITAMIN NOS) [Concomitant]
  7. ZOCOR (SIMVASTATIN) [Concomitant]
  8. VIAGRA (SILDENAFIL CITRATE) [Concomitant]

REACTIONS (2)
  - Hypertensive nephropathy [None]
  - Renal failure chronic [None]
